FAERS Safety Report 7078071-6 (Version None)
Quarter: 2010Q4

REPORT INFORMATION
  Report Type: 
  Country: None (occurrence: None)
  Receive Date: 20101102
  Receipt Date: 20101022
  Transmission Date: 20110411
  Serious: No
  Sender: FDA-Public Use
  Company Number: US-BIOGENIDEC-2010BI037270

PATIENT
  Sex: Male

DRUGS (4)
  1. TYSABRI [Suspect]
     Indication: MULTIPLE SCLEROSIS
     Route: 042
     Dates: start: 20071112, end: 20080303
  2. TYSABRI [Suspect]
     Route: 042
     Dates: start: 20100519, end: 20100616
  3. BETASERON [Concomitant]
     Indication: MULTIPLE SCLEROSIS
  4. STEROID [Concomitant]
     Indication: MULTIPLE SCLEROSIS

REACTIONS (5)
  - BLADDER DISORDER [None]
  - HEADACHE [None]
  - HYPERSENSITIVITY [None]
  - MOOD SWINGS [None]
  - RENAL DISORDER [None]
